FAERS Safety Report 16627363 (Version 1)
Quarter: 2019Q3

REPORT INFORMATION
  Report Type: Spontaneous
  Country: US (occurrence: US)
  Receive Date: 20190724
  Receipt Date: 20190724
  Transmission Date: 20191004
  Serious: Yes (Life-Threatening, Other)
  Sender: FDA-Public Use
  Company Number: US-PFIZER INC-2019308832

PATIENT
  Sex: Female

DRUGS (7)
  1. NEURONTIN [Concomitant]
     Active Substance: GABAPENTIN
     Indication: NEUROPATHY PERIPHERAL
     Dosage: 300 MG (ONE CAPSULE) VIA G-TUBE AT BEDTIME
     Dates: start: 20190616
  2. LEVETIRACETAM. [Suspect]
     Active Substance: LEVETIRACETAM
     Indication: SEIZURE
     Dosage: STRENGTH 500 MG/ 5 ML: 1000 MG (10 ML) VIA G-TUBE, 4X/DAY
     Dates: start: 20190616
  3. DILANTIN [PHENYTOIN SODIUM] [Concomitant]
     Indication: SEIZURE
     Dosage: 100 MG IN MORNING AND 150 MG AT BEDTIME (VIA G-TUBE)
  4. DILANTIN [PHENYTOIN SODIUM] [Concomitant]
     Dosage: 100 MG, 3X/DAY (VIA G-TUBE)
     Dates: start: 20190616
  5. JEVITY [ELECTROLYTES NOS;FATTY ACIDS NOS;GLYCINE MAX SEED OIL;MINERALS [Concomitant]
     Indication: NUTRITIONAL SUPPLEMENTATION
     Dosage: 1.2 360 ML BOLUS, 4X/DAY WITH 160 ML WATER FLUSH AT 1200, 0800, 1800, 0000
  6. ESCITALOPRAM OXALATE. [Concomitant]
     Active Substance: ESCITALOPRAM OXALATE
     Indication: DEPRESSION
     Dosage: 10 MG (ONE TABLET) VIA G-TUBE AT BEDTIME
     Dates: start: 20190616
  7. NEXIUM [Concomitant]
     Active Substance: ESOMEPRAZOLE MAGNESIUM
     Indication: GASTROOESOPHAGEAL REFLUX DISEASE
     Dosage: 40 MG (ONE CAPSULE) VIA G-TUBE IN THE MORNING
     Dates: start: 20190617

REACTIONS (7)
  - Crying [Unknown]
  - Abnormal behaviour [Unknown]
  - Muscle spasms [Unknown]
  - Body temperature increased [Unknown]
  - Peripheral swelling [Unknown]
  - Rash [Unknown]
  - Apparent death [Unknown]
